FAERS Safety Report 8447602-3 (Version None)
Quarter: 2012Q2

REPORT INFORMATION
  Report Type: 
  Country: None (occurrence: None)
  Receive Date: 20120613
  Receipt Date: 20120613
  Transmission Date: 20120825
  Serious: Yes (Hospitalization)
  Sender: FDA-Public Use
  Company Number: None

PATIENT
  Sex: Male
  Weight: 86.18 kg

DRUGS (1)
  1. CISPLATIN [Suspect]
     Dosage: 188 MG

REACTIONS (5)
  - WEIGHT DECREASED [None]
  - HYPOPHAGIA [None]
  - OLIGODIPSIA [None]
  - VOMITING [None]
  - COUGH [None]
